FAERS Safety Report 18754472 (Version 2)
Quarter: 2021Q1

REPORT INFORMATION
  Report Type: Spontaneous
  Country: US (occurrence: US)
  Receive Date: 20210119
  Receipt Date: 20210129
  Transmission Date: 20210419
  Serious: Yes (Hospitalization, Other)
  Sender: FDA-Public Use
  Company Number: US-AUROBINDO-AUR-APL-2021-001825

PATIENT
  Age: 51 Year
  Sex: Male

DRUGS (3)
  1. ACICLOVIR [Suspect]
     Active Substance: ACYCLOVIR
     Indication: HERPES ZOSTER
     Dosage: 800 MILLIGRAM FIVE TIMES A DAY
     Route: 065
  2. VALACICLOVIR [Suspect]
     Active Substance: VALACYCLOVIR HYDROCHLORIDE
     Indication: HERPES ZOSTER
     Dosage: 1 GRAM, 3 TIMES A DAY
     Route: 065
  3. VALACICLOVIR [Suspect]
     Active Substance: VALACYCLOVIR HYDROCHLORIDE
     Dosage: 500 MILLIGRAM, DAILY
     Route: 065

REACTIONS (3)
  - Neurotoxicity [Unknown]
  - Incorrect dose administered [Unknown]
  - Disease progression [Unknown]
